FAERS Safety Report 5383457-1 (Version None)
Quarter: 2007Q3

REPORT INFORMATION
  Report Type: 
  Country: None (occurrence: None)
  Receive Date: 20070710
  Receipt Date: 20070704
  Transmission Date: 20080115
  Serious: Yes (Death)
  Sender: FDA-Public Use
  Company Number: IT-ROXANE LABORATORIES, INC-2007-IT-00249IT

PATIENT
  Age: 69 Year
  Sex: Female

DRUGS (6)
  1. PARACETAMOL [Suspect]
  2. AMPICILLIN [Suspect]
  3. DIGOXIN [Suspect]
  4. ENALAPRIL MALEATE [Suspect]
  5. WARFARIN SODIUM [Suspect]
  6. FUROSEMIDE [Suspect]

REACTIONS (1)
  - TOXIC EPIDERMAL NECROLYSIS [None]
